FAERS Safety Report 7579906-0 (Version None)
Quarter: 2011Q2

REPORT INFORMATION
  Report Type: 
  Country: None (occurrence: None)
  Receive Date: 20110629
  Receipt Date: 20110616
  Transmission Date: 20111010
  Serious: Yes (Other)
  Sender: FDA-Public Use
  Company Number: US-ELI_LILLY_AND_COMPANY-US201012006375

PATIENT
  Sex: Female

DRUGS (2)
  1. FORTEO [Suspect]
     Dosage: 20 UG, QD
  2. FORTEO [Suspect]
     Indication: OSTEOPOROSIS
     Dosage: 20 UG, DAILY (1/D)
     Dates: start: 20101206

REACTIONS (16)
  - MUSCULOSKELETAL STIFFNESS [None]
  - PAIN [None]
  - BALANCE DISORDER [None]
  - BLOOD GLUCOSE INCREASED [None]
  - ARTHRALGIA [None]
  - PAIN IN EXTREMITY [None]
  - FALL [None]
  - HIP FRACTURE [None]
  - SCIATICA [None]
  - PAIN MANAGEMENT [None]
  - INJECTION SITE PAIN [None]
  - MUSCLE INJURY [None]
  - WRIST FRACTURE [None]
  - JOINT SPRAIN [None]
  - MALAISE [None]
  - DRUG DOSE OMISSION [None]
